FAERS Safety Report 6348964-3 (Version None)
Quarter: 2009Q3

REPORT INFORMATION
  Report Type: 
  Country: None (occurrence: None)
  Receive Date: 20090911
  Receipt Date: 20071022
  Transmission Date: 20100115
  Serious: Yes (Congenital Anomaly)
  Sender: FDA-Public Use
  Company Number: AU-NOVOPROD-269618

PATIENT
  Age: 37 Year
  Sex: Female

DRUGS (2)
  1. NOVOLOG [Suspect]
     Indication: DIABETES MELLITUS
     Dates: start: 20070201
  2. PROTAPHANE  INNOLET [Suspect]
     Indication: DIABETES MELLITUS
     Dates: start: 20070201

REACTIONS (2)
  - ABORTION SPONTANEOUS [None]
  - PREGNANCY [None]
